FAERS Safety Report 10456108 (Version 1)
Quarter: 2014Q3

REPORT INFORMATION
  Report Type: Spontaneous
  Country: US (occurrence: None)
  Receive Date: 20140915
  Receipt Date: 20140915
  Transmission Date: 20150326
  Serious: Yes (Hospitalization)
  Sender: FDA-Public Use
  Company Number: None

PATIENT
  Age: 49 Year
  Sex: Female
  Weight: 79.6 kg

DRUGS (3)
  1. NULOJIX [Suspect]
     Active Substance: BELATACEPT
     Dosage: 400 MG, ONCE Q 4 WK, IV
     Route: 042
     Dates: start: 20140828
  2. CELLCEPT [Suspect]
     Active Substance: MYCOPHENOLATE MOFETIL\MYCOPHENOLATE MOFETIL HYDROCHLORIDE
     Route: 048
     Dates: start: 20140311
  3. BELTACEPT INFUSION [Concomitant]

REACTIONS (10)
  - Sepsis [None]
  - Haemoglobin decreased [None]
  - Haematocrit decreased [None]
  - Balance disorder [None]
  - Pyrexia [None]
  - Dizziness [None]
  - Loss of consciousness [None]
  - Nausea [None]
  - Vomiting [None]
  - Escherichia urinary tract infection [None]

NARRATIVE: CASE EVENT DATE: 20140906
